FAERS Safety Report 25497153 (Version 1)
Quarter: 2025Q3

REPORT INFORMATION
  Report Type: Spontaneous
  Country: JP (occurrence: JP)
  Receive Date: 20250701
  Receipt Date: 20250701
  Transmission Date: 20251021
  Serious: Yes (Other)
  Sender: ASTELLAS
  Company Number: JP-ASTELLAS-2025-AER-034781

PATIENT
  Age: 73 Year
  Sex: Male

DRUGS (2)
  1. MIRABEGRON [Suspect]
     Active Substance: MIRABEGRON
     Indication: Product used for unknown indication
     Route: 048
  2. NAFTOPIDIL [Suspect]
     Active Substance: NAFTOPIDIL
     Indication: Product used for unknown indication
     Route: 048

REACTIONS (1)
  - Diabetes mellitus [Unknown]
